FAERS Safety Report 9096896 (Version 1)
Quarter: 2013Q1

REPORT INFORMATION
  Report Type: Spontaneous
  Country: FR (occurrence: FR)
  Receive Date: 20130211
  Receipt Date: 20130211
  Transmission Date: 20140127
  Serious: Yes (Hospitalization)
  Sender: FDA-Public Use
  Company Number: FR-SANOFI-AVENTIS-2013SA008496

PATIENT
  Age: 59 Year
  Sex: Male

DRUGS (6)
  1. AMARYL [Suspect]
     Indication: DIABETES MELLITUS
     Route: 048
     Dates: end: 20130104
  2. SINTROM [Interacting]
     Indication: THROMBOSIS PROPHYLAXIS
     Route: 048
     Dates: end: 20130104
  3. ZESTRIL [Interacting]
     Indication: PRODUCT USED FOR UNKNOWN INDICATION
     Dosage: STRNGTH: 5 MG
     Route: 048
  4. GLUCOR [Concomitant]
     Indication: DIABETES MELLITUS
     Dosage: STRENGTH: 100 MG
     Route: 048
  5. LASILIX [Concomitant]
     Dosage: STRENGTH: 40 MG
     Route: 048
  6. DETENSIEL [Concomitant]
     Dosage: STRENGTH: 10 MG
     Route: 048

REACTIONS (4)
  - Epistaxis [Recovered/Resolved]
  - Drug interaction [Unknown]
  - Anaemia [Recovered/Resolved]
  - Hypoglycaemia [Recovered/Resolved]
